FAERS Safety Report 8383649-3 (Version None)
Quarter: 2012Q1

REPORT INFORMATION
  Report Type: 
  Country: None (occurrence: None)
  Receive Date: 20120323
  Receipt Date: 20110329
  Transmission Date: 20120608
  Serious: Yes (Other)
  Sender: FDA-Public Use
  Company Number: 163-21880-11030647

PATIENT
  Age: 75 Year
  Sex: Female

DRUGS (6)
  1. REVLIMID [Suspect]
     Indication: MULTIPLE MYELOMA
     Dosage: 10 MG, 1 UB 1 D, PO; 5-10MG, DAILY, PO, 10 MG, 1  IN 1 D, PO
     Route: 048
     Dates: start: 20100501, end: 20110210
  2. REVLIMID [Suspect]
     Indication: MULTIPLE MYELOMA
     Dosage: 10 MG, 1 UB 1 D, PO; 5-10MG, DAILY, PO, 10 MG, 1  IN 1 D, PO
     Route: 048
     Dates: start: 20090601, end: 20090101
  3. REVLIMID [Suspect]
     Indication: MULTIPLE MYELOMA
     Dosage: 10 MG, 1 UB 1 D, PO; 5-10MG, DAILY, PO, 10 MG, 1  IN 1 D, PO
     Route: 048
     Dates: start: 20090901, end: 20100101
  4. CYTOXAN [Suspect]
     Indication: MULTIPLE MYELOMA
     Dates: start: 20110101, end: 20110101
  5. VELCADE [Concomitant]
  6. PREDNISONE TAB [Concomitant]

REACTIONS (2)
  - PANCYTOPENIA [None]
  - LIGHT CHAIN ANALYSIS INCREASED [None]
